FAERS Safety Report 5264768-7 (Version None)
Quarter: 2007Q1

REPORT INFORMATION
  Report Type: 
  Country: None (occurrence: None)
  Receive Date: 20070313
  Receipt Date: 20070226
  Transmission Date: 20070707
  Serious: Yes (Other)
  Sender: FDA-Public Use
  Company Number: PHBS2007AT03714

PATIENT
  Sex: Female

DRUGS (1)
  1. LESCOL [Suspect]
     Route: 065

REACTIONS (3)
  - GASTROINTESTINAL CARCINOMA [None]
  - LIVER FUNCTION TEST ABNORMAL [None]
  - TUMOUR MARKER INCREASED [None]
